FAERS Safety Report 22856582 (Version 4)
Quarter: 2024Q2

REPORT INFORMATION
  Report Type: Spontaneous
  Country: US (occurrence: US)
  Receive Date: 20230823
  Receipt Date: 20240503
  Transmission Date: 20240715
  Serious: Yes (Hospitalization, Other)
  Sender: FDA-Public Use
  Company Number: US-PFIZER INC-US-GBT-017841

PATIENT
  Age: 51 Year
  Sex: Female
  Weight: 61.23 kg

DRUGS (2)
  1. OXBRYTA [Suspect]
     Active Substance: VOXELOTOR
     Indication: Sickle cell disease
     Dosage: THREE 500 MG TABLETS ONCE DAILY
     Route: 048
     Dates: start: 20210329, end: 202205
  2. OXBRYTA [Suspect]
     Active Substance: VOXELOTOR
     Dosage: THREE 500 MG TABLETS ONCE DAILY
     Route: 048
     Dates: start: 202210

REACTIONS (3)
  - Cerebrovascular accident [Unknown]
  - Sickle cell anaemia with crisis [Unknown]
  - Pain [Unknown]

NARRATIVE: CASE EVENT DATE: 20220501
